FAERS Safety Report 25076976 (Version 1)
Quarter: 2025Q1

REPORT INFORMATION
  Report Type: Report from Study
  Country: MX (occurrence: MX)
  Receive Date: 20250314
  Receipt Date: 20250314
  Transmission Date: 20250408
  Serious: Yes (Other)
  Sender: ABBVIE
  Company Number: MX-ABBVIE-6173370

PATIENT
  Sex: Male
  Weight: 72 kg

DRUGS (2)
  1. RINVOQ [Suspect]
     Active Substance: UPADACITINIB
     Indication: Psoriatic arthropathy
     Route: 048
     Dates: start: 20240627
  2. Aprovasc (Irbesart?n/Amlodipino) [Concomitant]
     Indication: Hypertension
     Route: 048

REACTIONS (4)
  - Shock [Unknown]
  - Liver injury [Unknown]
  - Rash [Unknown]
  - Fatigue [Unknown]
